FAERS Safety Report 13607529 (Version 1)
Quarter: 2017Q2

REPORT INFORMATION
  Report Type: Spontaneous
  Country: US (occurrence: US)
  Receive Date: 20170602
  Receipt Date: 20170602
  Transmission Date: 20170830
  Serious: No
  Sender: FDA-Public Use
  Company Number: US-GLAXOSMITHKLINE-US2017GSK083435

PATIENT
  Sex: Female
  Weight: 111.1 kg

DRUGS (11)
  1. LEVEMIR [Concomitant]
     Active Substance: INSULIN DETEMIR
  2. METOPROLOL TARTRATE. [Concomitant]
     Active Substance: METOPROLOL TARTRATE
  3. ATORVASTATIN [Concomitant]
     Active Substance: ATORVASTATIN
  4. GLIPIZIDE. [Concomitant]
     Active Substance: GLIPIZIDE
  5. REGRANEX [Suspect]
     Active Substance: BECAPLERMIN
     Indication: DIABETIC ULCER
     Dosage: 12H ON, 12H OFF, QD
     Route: 061
     Dates: start: 201704, end: 2017
  6. ASPIRIN. [Concomitant]
     Active Substance: ASPIRIN
  7. NOVOLOG [Concomitant]
     Active Substance: INSULIN ASPART
  8. MUPIROCIN. [Suspect]
     Active Substance: MUPIROCIN
     Indication: DIABETIC ULCER
     Dosage: UNK, QOD
     Route: 061
     Dates: start: 2017
  9. REGRANEX [Suspect]
     Active Substance: BECAPLERMIN
     Dosage: UNK, QOD
     Route: 061
     Dates: start: 2017, end: 2017
  10. AMLODIPINE BESYLATE. [Concomitant]
     Active Substance: AMLODIPINE BESYLATE
  11. PANTOPRAZOLE [Concomitant]
     Active Substance: PANTOPRAZOLE

REACTIONS (2)
  - Inappropriate schedule of drug administration [Unknown]
  - Application site erythema [Recovering/Resolving]

NARRATIVE: CASE EVENT DATE: 2017
